FAERS Safety Report 23539986 (Version 1)
Quarter: 2024Q1

REPORT INFORMATION
  Report Type: Spontaneous
  Country: CZ (occurrence: CZ)
  Receive Date: 20240219
  Receipt Date: 20240219
  Transmission Date: 20240410
  Serious: Yes (Other)
  Sender: FDA-Public Use
  Company Number: CZ-AMGEN-CZESP2023213638

PATIENT
  Sex: Male

DRUGS (1)
  1. ADALIMUMAB [Suspect]
     Active Substance: ADALIMUMAB\ISOPROPYL ALCOHOL
     Indication: Inflammatory bowel disease
     Dosage: UNK
     Route: 065

REACTIONS (6)
  - Tubulointerstitial nephritis [Unknown]
  - Kidney fibrosis [Unknown]
  - Chronic kidney disease [Unknown]
  - Colitis [Unknown]
  - Drug ineffective [Unknown]
  - Off label use [Unknown]
